FAERS Safety Report 4677613-5 (Version None)
Quarter: 2005Q2

REPORT INFORMATION
  Report Type: 
  Country: None (occurrence: None)
  Receive Date: 20050531
  Receipt Date: 20050311
  Transmission Date: 20051028
  Serious: Yes (Life-Threatening)
  Sender: FDA-Public Use
  Company Number: JP-ROCHE-398617

PATIENT
  Age: 56 Year
  Sex: Female

DRUGS (8)
  1. TAMIFLU [Suspect]
     Route: 048
     Dates: start: 20050310, end: 20050310
  2. PREDONINE [Concomitant]
     Route: 048
  3. ZYLORIC [Concomitant]
     Route: 048
  4. TAGAMET [Concomitant]
     Route: 048
  5. CONAN [Concomitant]
     Route: 048
  6. DIOVAN [Concomitant]
     Route: 048
  7. CONIEL [Concomitant]
     Route: 048
  8. TRYPTANOL [Concomitant]
     Route: 048

REACTIONS (1)
  - ANAPHYLACTIC SHOCK [None]
